FAERS Safety Report 17855977 (Version 1)
Quarter: 2020Q2

REPORT INFORMATION
  Report Type: Spontaneous
  Country: DE (occurrence: DE)
  Receive Date: 20200603
  Receipt Date: 20200603
  Transmission Date: 20200714
  Serious: Yes (Hospitalization, Other)
  Sender: FDA-Public Use
  Company Number: DE-MYLANLABS-2020M1053479

PATIENT
  Age: 61 Year
  Sex: Male
  Weight: 85 kg

DRUGS (4)
  1. VERAPAMIL [Suspect]
     Active Substance: VERAPAMIL HYDROCHLORIDE
     Indication: PRODUCT USED FOR UNKNOWN INDICATION
     Dosage: 40 MG, BID
     Route: 065
  2. ERELZI [Suspect]
     Active Substance: ETANERCEPT-SZZS
     Indication: PSORIASIS
     Dosage: 50 MG (ONCE OR TWICE/ WEEK)
     Route: 058
     Dates: start: 20170824
  3. ERELZI [Suspect]
     Active Substance: ETANERCEPT-SZZS
     Dosage: 50 MG, (EVERY 14 DAYS)
     Route: 058
  4. ERELZI [Suspect]
     Active Substance: ETANERCEPT-SZZS
     Dosage: 50 MG, QW
     Route: 058
     Dates: start: 20200215

REACTIONS (16)
  - Mean cell haemoglobin increased [Unknown]
  - Blood cholesterol increased [Unknown]
  - Therapeutic product effect incomplete [Recovered/Resolved]
  - Psoriasis [Recovered/Resolved]
  - Mean cell haemoglobin concentration increased [Unknown]
  - Gamma-glutamyltransferase increased [Unknown]
  - Pruritus [Recovered/Resolved]
  - Sleep disorder [Recovered/Resolved]
  - Performance status decreased [Unknown]
  - Eczema [Recovered/Resolved]
  - Hypertension [Unknown]
  - Hot flush [Recovered/Resolved]
  - Nausea [Recovered/Resolved]
  - Mean cell volume increased [Unknown]
  - Solar dermatitis [Unknown]
  - Blood uric acid increased [Unknown]

NARRATIVE: CASE EVENT DATE: 201910
